FAERS Safety Report 7303532-1 (Version None)
Quarter: 2011Q1

REPORT INFORMATION
  Report Type: 
  Country: None (occurrence: None)
  Receive Date: 20110221
  Receipt Date: 20110216
  Transmission Date: 20110831
  Serious: Yes (Death, Hospitalization)
  Sender: FDA-Public Use
  Company Number: PHHY2011JP04548

PATIENT
  Age: 80 Year
  Sex: Male

DRUGS (24)
  1. TICLOPIDINE HYDROCHLORIDE [Concomitant]
     Dosage: UNK
  2. ARTIST [Concomitant]
     Dosage: UNK
  3. DISOPYRAMIDE PHOSPHATE [Concomitant]
     Dosage: UNK
  4. ZETIA [Concomitant]
     Dosage: UNK
  5. ASPIRIN [Concomitant]
     Dosage: UNK
  6. ARICEPT [Concomitant]
     Dosage: UNK
  7. BLOPRESS [Concomitant]
     Dosage: UNK
  8. PURSENNID [Concomitant]
     Dosage: UNK
  9. MAGNESIUM [Concomitant]
     Dosage: UNK
  10. CARDENALIN [Concomitant]
     Dosage: UNK
  11. TAKEPRON [Concomitant]
     Dosage: UNK
  12. LAC B [Concomitant]
     Dosage: UNK
  13. SIGMART [Concomitant]
     Dosage: UNK
  14. PRAVASTATIN SODIUM [Concomitant]
     Dosage: UNK
  15. FERROUS CITRATE [Concomitant]
     Dosage: UNK
  16. JANUVIA [Concomitant]
     Dosage: UNK
  17. PROCYLIN [Concomitant]
     Dosage: UNK
  18. URINORM [Concomitant]
     Dosage: UNK
  19. MEIACT [Concomitant]
     Dosage: UNK
  20. ANTIBACTERIALS [Concomitant]
     Dosage: UNK
  21. RASILEZ [Suspect]
     Indication: HYPERTENSION
     Dosage: UNK
     Route: 048
     Dates: start: 20101001
  22. FRANDOL [Concomitant]
     Dosage: UNK
  23. CONIEL [Concomitant]
     Dosage: UNK
  24. SHAKUYAKUKANZOUTOU [Concomitant]
     Dosage: UNK

REACTIONS (3)
  - PNEUMONIA [None]
  - DEATH [None]
  - RESPIRATORY FAILURE [None]
